FAERS Safety Report 4754874-5 (Version None)
Quarter: 2005Q3

REPORT INFORMATION
  Report Type: 
  Country: None (occurrence: None)
  Receive Date: 20050829
  Receipt Date: 20050311
  Transmission Date: 20060218
  Serious: Yes (Hospitalization, Other)
  Sender: FDA-Public Use
  Company Number: US-MERCK-0503USA02666

PATIENT
  Age: 62 Year
  Sex: Male
  Weight: 82 kg

DRUGS (4)
  1. VIOXX [Suspect]
     Indication: RHEUMATOID ARTHRITIS
     Route: 048
     Dates: start: 20010101, end: 20040101
  2. LORCET 10/650 [Concomitant]
     Route: 065
     Dates: start: 20020101, end: 20030101
  3. PERCOCET [Concomitant]
     Route: 065
     Dates: start: 20020101, end: 20030101
  4. [THERAPY UNSPECIFIED] [Concomitant]
     Route: 065
     Dates: start: 20020101

REACTIONS (7)
  - BLOOD CHOLESTEROL INCREASED [None]
  - CARDIAC DISORDER [None]
  - DYSPNOEA [None]
  - HERNIA [None]
  - MYOCARDIAL INFARCTION [None]
  - OVERDOSE [None]
  - SURGERY [None]
